FAERS Safety Report 8870094 (Version 2)
Quarter: 2013Q1

REPORT INFORMATION
  Report Type: Spontaneous
  Country: US (occurrence: US)
  Receive Date: 20121028
  Receipt Date: 20130123
  Transmission Date: 20140127
  Serious: No
  Sender: FDA-Public Use
  Company Number: US-009507513-1210USA001997

PATIENT
  Age: 50 None
  Sex: Male

DRUGS (4)
  1. VICTRELIS [Suspect]
     Indication: HEPATITIS C
     Dosage: FOUR 200 MG CAPSULES EVERY 8 HRS
     Route: 048
     Dates: start: 20120913
  2. VICTRELIS [Suspect]
     Dosage: 4 CAPSULES EVERY 8 HOURS
     Route: 048
     Dates: start: 20120905, end: 201209
  3. RIBAPAK [Suspect]
     Indication: HEPATITIS C
     Dosage: UNK
     Dates: start: 20120806
  4. PEGASYS [Suspect]
     Indication: HEPATITIS C
     Dosage: UNK
     Dates: start: 20120806

REACTIONS (20)
  - Skin exfoliation [Unknown]
  - Emotional disorder [Recovering/Resolving]
  - Sexual dysfunction [Unknown]
  - Dry skin [Unknown]
  - Asthenia [Unknown]
  - Joint swelling [Not Recovered/Not Resolved]
  - Arthralgia [Not Recovered/Not Resolved]
  - Hypoaesthesia [Not Recovered/Not Resolved]
  - Fatigue [Not Recovered/Not Resolved]
  - Drug dose omission [Unknown]
  - Somnolence [Not Recovered/Not Resolved]
  - Scab [Unknown]
  - White blood cell count decreased [Unknown]
  - Dyspnoea [Unknown]
  - Nausea [Unknown]
  - Irritability [Unknown]
  - Paraesthesia [Unknown]
  - Pruritus [Recovered/Resolved]
  - Rash [Unknown]
  - Acne [Unknown]
